FAERS Safety Report 5319900-3 (Version None)
Quarter: 2007Q2

REPORT INFORMATION
  Report Type: 
  Country: None (occurrence: None)
  Receive Date: 20070503
  Receipt Date: 20070425
  Transmission Date: 20071010
  Serious: Yes (Hospitalization)
  Sender: FDA-Public Use
  Company Number: 2007SP007800

PATIENT
  Age: 64 Year
  Sex: Male

DRUGS (6)
  1. MOMETASONE FUROATE (S-P) (NASAL) (50 MCG) [Suspect]
     Indication: DRUG USE FOR UNKNOWN INDICATION
     Dosage: NAS
     Route: 045
  2. BLINDED [Suspect]
     Indication: BENIGN PROSTATIC HYPERPLASIA
     Dosage: PO
     Route: 048
     Dates: start: 20040527
  3. IRBESARTAN [Concomitant]
  4. ASPIRIN [Concomitant]
  5. VARDENAFIL [Concomitant]
  6. SILDENAFIL CITRATE [Concomitant]

REACTIONS (2)
  - DYSPNOEA [None]
  - NASAL CONGESTION [None]
